FAERS Safety Report 9744127 (Version 1)
Quarter: 2013Q4

REPORT INFORMATION
  Report Type: Spontaneous
  Country: GB (occurrence: GB)
  Receive Date: 20131210
  Receipt Date: 20131210
  Transmission Date: 20140711
  Serious: Yes (Hospitalization)
  Sender: FDA-Public Use
  Company Number: GB-WATSON-2013-22600

PATIENT
  Age: 54 Year
  Sex: Male
  Weight: 111 kg

DRUGS (10)
  1. CIPROFLOXACIN HYDROCHLORIDE (UNKNOWN) [Suspect]
     Indication: URINARY TRACT INFECTION
     Dosage: 500 MG, BID
     Route: 065
     Dates: start: 20131108
  2. SIMVASTATIN [Concomitant]
     Indication: PRODUCT USED FOR UNKNOWN INDICATION
     Dosage: UNK
     Route: 065
     Dates: start: 20130801, end: 20130829
  3. SIMVASTATIN [Concomitant]
     Dosage: UNK
     Route: 065
     Dates: start: 20130902, end: 20130930
  4. SIMVASTATIN [Concomitant]
     Dosage: UNK
     Route: 065
     Dates: start: 20131011, end: 20131108
  5. GLICLAZIDE [Concomitant]
     Indication: PRODUCT USED FOR UNKNOWN INDICATION
     Dosage: UNK
     Route: 065
     Dates: start: 20130801, end: 20130829
  6. GLICLAZIDE [Concomitant]
     Dosage: UNK
     Route: 065
     Dates: start: 20130902, end: 20131108
  7. METFORMIN [Concomitant]
     Indication: PRODUCT USED FOR UNKNOWN INDICATION
     Dosage: UNK
     Route: 065
     Dates: start: 20130902, end: 20130930
  8. METFORMIN [Concomitant]
     Dosage: UNK
     Route: 065
     Dates: start: 20131011, end: 20131108
  9. EXENATIDE [Concomitant]
     Indication: PRODUCT USED FOR UNKNOWN INDICATION
     Dosage: UNK
     Route: 065
     Dates: start: 20130902, end: 20130909
  10. EXENATIDE [Concomitant]
     Dosage: UNK
     Route: 065
     Dates: start: 20131011, end: 20131018

REACTIONS (1)
  - Pericarditis [Recovering/Resolving]
